FAERS Safety Report 24356387 (Version 1)
Quarter: 2024Q3

REPORT INFORMATION
  Report Type: Spontaneous
  Country: BR (occurrence: BR)
  Receive Date: 20240924
  Receipt Date: 20240924
  Transmission Date: 20241017
  Serious: Yes (Hospitalization)
  Sender: GLAXOSMITHKLINE
  Company Number: BR-GLAXOSMITHKLINE-BR2024AMR092926

PATIENT

DRUGS (6)
  1. NUCALA [Suspect]
     Active Substance: MEPOLIZUMAB
     Indication: Asthma
     Dosage: 100 MG, Q4W
     Dates: start: 20190816
  2. NUCALA [Suspect]
     Active Substance: MEPOLIZUMAB
     Indication: Asthma
     Dosage: 100 MG
  3. PREDNISONE [Concomitant]
     Active Substance: PREDNISONE
     Indication: Product used for unknown indication
     Dosage: UNK
  4. Alenia [Concomitant]
     Indication: Product used for unknown indication
     Dosage: UNK
  5. ALBUTEROL [Concomitant]
     Active Substance: ALBUTEROL
     Indication: Product used for unknown indication
     Dosage: UNK
  6. BUDESONIDE [Concomitant]
     Active Substance: BUDESONIDE
     Indication: Product used for unknown indication
     Dosage: UNK

REACTIONS (13)
  - Hospitalisation [Unknown]
  - Dyspnoea [Not Recovered/Not Resolved]
  - Fatigue [Not Recovered/Not Resolved]
  - Cough [Not Recovered/Not Resolved]
  - Gait inability [Not Recovered/Not Resolved]
  - Fluid retention [Not Recovered/Not Resolved]
  - Weight increased [Not Recovered/Not Resolved]
  - Nasal disorder [Not Recovered/Not Resolved]
  - Illness [Unknown]
  - Loss of personal independence in daily activities [Unknown]
  - Head discomfort [Unknown]
  - Total lung capacity decreased [Unknown]
  - Product dose omission issue [Unknown]

NARRATIVE: CASE EVENT DATE: 20240201
